FAERS Safety Report 4725761-3 (Version None)
Quarter: 2005Q3

REPORT INFORMATION
  Report Type: 
  Country: None (occurrence: None)
  Receive Date: 20050727
  Receipt Date: 20050712
  Transmission Date: 20060218
  Serious: Yes (Hospitalization)
  Sender: FDA-Public Use
  Company Number: 200512481FR

PATIENT
  Sex: Female

DRUGS (5)
  1. RILUTEK [Suspect]
     Indication: AMYOTROPHIC LATERAL SCLEROSIS
     Dates: start: 20050416, end: 20050510
  2. PROZAC [Concomitant]
  3. PREVISCAN [Concomitant]
  4. OESTRODOSE [Concomitant]
  5. TENORMIN [Concomitant]
     Indication: HYPERTENSION

REACTIONS (2)
  - PULMONARY EMBOLISM [None]
  - VIRAL INFECTION [None]
